FAERS Safety Report 13193163 (Version 2)
Quarter: 2017Q1

REPORT INFORMATION
  Report Type: Spontaneous
  Country: GB (occurrence: GB)
  Receive Date: 20170207
  Receipt Date: 20170224
  Transmission Date: 20170428
  Serious: No
  Sender: FDA-Public Use
  Company Number: GB-LHC-2017027

PATIENT
  Age: 19 Month
  Sex: Male

DRUGS (1)
  1. COMPRESSED MEDICAL OXYGEN [Suspect]
     Active Substance: OXYGEN
     Indication: LUNG DISORDER

REACTIONS (2)
  - Oxygen saturation decreased [Recovered/Resolved]
  - Drug administration error [Recovered/Resolved]
